FAERS Safety Report 19076643 (Version 2)
Quarter: 2021Q4

REPORT INFORMATION
  Report Type: Spontaneous
  Country: GB (occurrence: GB)
  Receive Date: 20210331
  Receipt Date: 20211109
  Transmission Date: 20220303
  Serious: Yes (Other)
  Sender: FDA-Public Use
  Company Number: GB-SUN PHARMACEUTICAL INDUSTRIES LTD-2021RR-288389

PATIENT
  Age: 51 Year
  Sex: Female
  Weight: 74.83 kg

DRUGS (1)
  1. SERTRALINE [Suspect]
     Active Substance: SERTRALINE HYDROCHLORIDE
     Indication: Depression suicidal
     Dosage: 50MG THEN INCREASED TO 100MG THEN INCREASED TO 150MG
     Route: 048
     Dates: start: 20200210, end: 20200920

REACTIONS (2)
  - Urinary incontinence [Recovered/Resolved]
  - Decreased appetite [Recovered/Resolved]

NARRATIVE: CASE EVENT DATE: 20200401
